FAERS Safety Report 9991853 (Version 4)
Quarter: 2014Q2

REPORT INFORMATION
  Report Type: Spontaneous
  Country: JP (occurrence: JP)
  Receive Date: 20140310
  Receipt Date: 20140514
  Transmission Date: 20141212
  Serious: Yes (Death)
  Sender: FDA-Public Use
  Company Number: JP-MALLINCKRODT-T201304261

PATIENT
  Age: 62 Year
  Sex: Male
  Weight: 57 kg

DRUGS (39)
  1. METHADONE [Suspect]
     Indication: CANCER PAIN
     Dosage: 5 MG (15 MG DAILY DOSE)
     Route: 048
     Dates: start: 20130805, end: 20130811
  2. METHADONE [Suspect]
     Dosage: 10 MG (20 MG DAILY DOSE)
     Route: 048
     Dates: start: 20130812, end: 20130911
  3. METHADONE [Suspect]
     Dosage: 10 MG (20 MG DAILY DOSE)
     Route: 048
     Dates: start: 20130912, end: 20130918
  4. METHADONE [Suspect]
     Dosage: 20 MG (40 MG DAILY DOSE)
     Route: 048
     Dates: start: 20130919, end: 20131113
  5. METHADONE [Suspect]
     Dosage: 25 MG (50 MG DAILY DOSE)
     Route: 048
     Dates: start: 20131114, end: 20131120
  6. METHADONE [Suspect]
     Dosage: 30 MG (60 MG DAILY DOSE)
     Route: 048
     Dates: start: 20131121, end: 20131211
  7. METHADONE [Suspect]
     Dosage: 40 MG (80 MG DAILY DOSE)
     Route: 048
     Dates: start: 20131212, end: 20140109
  8. METHADONE [Suspect]
     Dosage: 50 MG (100 MG DAILY DOSE)
     Route: 048
     Dates: start: 20140110, end: 20140117
  9. METHADONE [Suspect]
     Dosage: 60 MG (120 MG DAILY DOSE)
     Route: 048
     Dates: start: 20140118, end: 20140205
  10. METHADONE [Suspect]
     Dosage: 70 MG (140 MG DAILY DOSE)
     Route: 048
     Dates: start: 20140206, end: 20140213
  11. OXINORM [Concomitant]
     Dosage: 10 MG, PRN
     Route: 048
     Dates: start: 20130805, end: 20140112
  12. MAGMITT [Concomitant]
     Dosage: 1500 MG, UNK
     Route: 048
     Dates: end: 20140213
  13. LOXOPROFEN [Concomitant]
     Dosage: 180 MG, UNK
     Route: 048
     Dates: end: 20140213
  14. REBAMIPIDE [Concomitant]
     Dosage: 300 MG, UNK
     Route: 048
     Dates: end: 20140213
  15. MYSLEE [Concomitant]
     Dosage: 5 MG, UNK
     Route: 048
     Dates: end: 20130925
  16. NEXIUM [Concomitant]
     Dosage: 20 MG, UNK
     Route: 048
     Dates: end: 20140213
  17. LAXOBERON [Concomitant]
     Dosage: 15 GTT, UNK
     Route: 048
     Dates: end: 20130912
  18. SHAKUYAKUKANZOTO [Concomitant]
     Dosage: 1 DF, UNK
     Route: 048
     Dates: end: 20130817
  19. LASIX [Concomitant]
     Dosage: 20 MG, UNK
     Route: 048
     Dates: end: 20140213
  20. ALDACTONE A [Concomitant]
     Dosage: 25 MG, UNK
     Route: 048
     Dates: end: 20140213
  21. BAYASPIRIN [Concomitant]
     Dosage: 100 MG, UNK
     Route: 048
     Dates: end: 20140213
  22. MAINTATE [Concomitant]
     Dosage: 0.625 MG, UNK
     Route: 048
     Dates: end: 20140213
  23. LIVALO [Concomitant]
     Dosage: 2 MG, UNK
     Route: 048
     Dates: end: 20140213
  24. PURSENNID [Concomitant]
     Dosage: 24 MG, UNK
     Route: 048
     Dates: end: 20140213
  25. GEMZAR [Concomitant]
     Dosage: UNK
     Route: 051
     Dates: end: 20130905
  26. ZOMETA [Concomitant]
     Dosage: 4 MG, UNK
     Route: 051
     Dates: start: 20130822, end: 20131001
  27. TS-1 [Concomitant]
     Indication: PANCREATIC CARCINOMA
     Dosage: 120 MG, UNK
     Route: 048
     Dates: start: 20130920, end: 20131017
  28. DEPAKENE [Concomitant]
     Dosage: 400 MG, UNK
     Route: 048
     Dates: start: 20131212, end: 20140213
  29. VOLTAREN [Concomitant]
     Dosage: 100 MG, UNK
     Route: 054
     Dates: start: 20140116, end: 20140213
  30. BROTIZOLAM [Concomitant]
     Dosage: 0.25 MG, UNK
     Route: 048
     Dates: start: 20140111, end: 20140213
  31. BETANAMIN [Concomitant]
     Dosage: 10 MG, UNK
     Route: 048
     Dates: start: 20131226, end: 20140213
  32. RINDERON [Concomitant]
     Dosage: 4 MG, UNK
     Route: 051
     Dates: start: 20140117, end: 20140219
  33. ROPION [Concomitant]
     Dosage: 1000 MG, UNK
     Route: 051
     Dates: start: 20140129, end: 20140219
  34. MIDAZOLAM [Concomitant]
     Dosage: 30 MG, UNK
     Route: 051
     Dates: start: 20140128, end: 20140219
  35. ANAPEINE [Concomitant]
     Dosage: 100 MG, UNK
     Route: 008
     Dates: start: 20140124, end: 20140218
  36. KETALAR [Concomitant]
     Dosage: 25 MG, UNK
     Route: 008
     Dates: start: 20140124, end: 20140126
  37. XYLOCAINE [Concomitant]
     Dosage: 240 MG, UNK
     Route: 008
     Dates: start: 20140124, end: 20140226
  38. MORPHINE HYDROCHLORIDE [Concomitant]
     Dosage: 10 MG, UNK
     Route: 008
     Dates: start: 20140127, end: 20140218
  39. ZOLPIDEM [Concomitant]
     Dosage: 5 MG, UNK
     Route: 048
     Dates: end: 20131226

REACTIONS (4)
  - Pancreatic carcinoma [Fatal]
  - Pyrexia [Recovered/Resolved]
  - Somnolence [Recovered/Resolved]
  - Insomnia [Recovered/Resolved]
